FAERS Safety Report 7244586-0 (Version None)
Quarter: 2011Q1

REPORT INFORMATION
  Report Type: 
  Country: None (occurrence: None)
  Receive Date: 20110125
  Receipt Date: 20110113
  Transmission Date: 20110831
  Serious: Yes (Other)
  Sender: FDA-Public Use
  Company Number: CH-PFIZER INC-CH-WYE-H12592709

PATIENT
  Sex: Female
  Weight: 2.42 kg

DRUGS (10)
  1. EPIRUBICIN HYDROCHLORIDE [Suspect]
     Indication: BREAST CANCER
     Dosage: 100 MG/M2, WEEKLY
     Route: 064
     Dates: start: 20090106, end: 20090217
  2. ZURCAL [Suspect]
     Indication: PROPHYLAXIS
     Dosage: 20.0 MG, 1X/DAY
     Route: 064
     Dates: start: 20090101, end: 20090101
  3. SOLU-MEDROL [Concomitant]
     Indication: VOMITING
  4. ELEVIT [Concomitant]
     Indication: PREGNANCY
     Dosage: 1 DF, 1X/DAY
     Route: 064
     Dates: start: 20080101, end: 20090101
  5. CYCLOPHOSPHAMIDE [Suspect]
     Indication: BREAST CANCER
     Dosage: 500 MG/M2, WEEKLY
     Route: 064
     Dates: start: 20090106, end: 20090217
  6. FERRO SANOL [Concomitant]
     Dosage: 1 DF, 1X/DAY
     Route: 064
  7. FLUOROURACIL [Suspect]
     Indication: BREAST CANCER
     Dosage: 500 MG/M2, WEEKLY
     Route: 064
     Dates: start: 20090106, end: 20090217
  8. ZOFRAN [Suspect]
     Indication: NAUSEA
     Dosage: 8 MG, CYCLIC
     Route: 064
     Dates: start: 20090106, end: 20090101
  9. SOLU-MEDROL [Concomitant]
     Indication: NAUSEA
     Route: 064
  10. ZOFRAN [Suspect]
     Indication: VOMITING

REACTIONS (5)
  - NEONATAL RESPIRATORY DISTRESS SYNDROME [None]
  - DRUG EXPOSURE DURING PREGNANCY [None]
  - HYPOGLYCAEMIA NEONATAL [None]
  - FOETAL GROWTH RESTRICTION [None]
  - NEONATAL HYPOTENSION [None]
